FAERS Safety Report 5917306-7 (Version None)
Quarter: 2008Q4

REPORT INFORMATION
  Report Type: 
  Country: None (occurrence: None)
  Receive Date: 20081014
  Receipt Date: 20081007
  Transmission Date: 20090506
  Serious: Yes (Other)
  Sender: FDA-Public Use
  Company Number: BR-ROCHE-590454

PATIENT
  Age: 69 Year
  Sex: Female
  Weight: 96 kg

DRUGS (7)
  1. XENICAL [Suspect]
     Indication: WEIGHT CONTROL
     Route: 048
     Dates: start: 20080905, end: 20080916
  2. TRIMEBUTINE [Concomitant]
     Indication: FLATULENCE
     Dosage: DRUG NAME: DIGEDRAT
  3. SERETIDE [Concomitant]
     Indication: ASTHMA
     Dosage: STRENGTH: 150 UNIT.
  4. BENICAR [Concomitant]
     Indication: HYPERTENSION
  5. MANIVASC [Concomitant]
     Indication: HYPERTENSION
  6. OMEPRAZOLE [Concomitant]
     Indication: GASTRITIS
  7. CITALOR [Concomitant]

REACTIONS (3)
  - DIVERTICULITIS [None]
  - FLATULENCE [None]
  - WHITE BLOOD CELL COUNT INCREASED [None]
